FAERS Safety Report 10345294 (Version 2)
Quarter: 2014Q3

REPORT INFORMATION
  Report Type: Spontaneous
  Country: US (occurrence: US)
  Receive Date: 20140728
  Receipt Date: 20140813
  Transmission Date: 20150326
  Serious: Yes (Hospitalization)
  Sender: FDA-Public Use
  Company Number: US-JNJFOC-20140712845

PATIENT
  Age: 80 Year
  Sex: Female
  Weight: 75.75 kg

DRUGS (10)
  1. CELEBREX [Concomitant]
     Active Substance: CELECOXIB
     Indication: ARTHRITIS
     Route: 065
  2. AMLODIPINE [Concomitant]
     Active Substance: AMLODIPINE BESYLATE
     Indication: BLOOD PRESSURE
     Route: 065
  3. CALCIUM [Concomitant]
     Active Substance: CALCIUM
     Indication: BONE DISORDER
     Route: 065
  4. GLUCOSAMINE / CHONDROITIN [Concomitant]
     Indication: ARTHROPATHY
     Route: 065
  5. NIZORAL A-D [Suspect]
     Active Substance: KETOCONAZOLE
     Route: 061
  6. NEXIUM [Interacting]
     Active Substance: ESOMEPRAZOLE MAGNESIUM
     Indication: DYSPEPSIA
     Dosage: 200
     Route: 065
  7. MULTIVITAMINS [Concomitant]
     Active Substance: VITAMINS
     Route: 065
  8. LEVOTHYROXINE [Concomitant]
     Active Substance: LEVOTHYROXINE
     Indication: HYPOTHYROIDISM
     Dosage: 100
     Route: 065
  9. NIZORAL A-D [Suspect]
     Active Substance: KETOCONAZOLE
     Indication: FUNGAL SKIN INFECTION
     Route: 061
     Dates: start: 20140715
  10. NEXIUM [Interacting]
     Active Substance: ESOMEPRAZOLE MAGNESIUM
     Indication: GASTROOESOPHAGEAL REFLUX DISEASE
     Dosage: 200
     Route: 065

REACTIONS (4)
  - Drug interaction [Recovered/Resolved]
  - Atrial fibrillation [Recovered/Resolved]
  - Expired product administered [Unknown]
  - Off label use [Unknown]

NARRATIVE: CASE EVENT DATE: 20140715
